FAERS Safety Report 7516697-3 (Version None)
Quarter: 2011Q2

REPORT INFORMATION
  Report Type: 
  Country: None (occurrence: None)
  Receive Date: 20110601
  Receipt Date: 20110519
  Transmission Date: 20111010
  Serious: Yes (Death)
  Sender: FDA-Public Use
  Company Number: US-GILEAD-2011-0036735

PATIENT
  Sex: Male

DRUGS (3)
  1. LETAIRIS [Suspect]
     Indication: MIXED CONNECTIVE TISSUE DISEASE
  2. VENTAVIS [Concomitant]
  3. LETAIRIS [Suspect]
     Indication: PULMONARY HYPERTENSION
     Route: 048
     Dates: start: 20090811, end: 20110211

REACTIONS (3)
  - MYOCARDIAL INFARCTION [None]
  - CONDITION AGGRAVATED [None]
  - CARDIAC ARREST [None]
